FAERS Safety Report 9925875 (Version 2)
Quarter: 2014Q2

REPORT INFORMATION
  Report Type: Not Available
  Country: GB (occurrence: GB)
  Receive Date: 20140226
  Receipt Date: 20140401
  Transmission Date: 20141212
  Serious: Yes (Death, Hospitalization, Other)
  Sender: FDA-Public Use
  Company Number: GB-PURDUE-USA-2014-0111442

PATIENT
  Age: 22 Year
  Sex: Male

DRUGS (3)
  1. TRAMADOL (SIMILAR TO NDA 21-745) [Suspect]
     Indication: PRODUCT USED FOR UNKNOWN INDICATION
     Dosage: TOOK UP TO 20 TABLETS IN A HALF HOUR
     Route: 048
  2. BENZODIAZEPINE RELATED DRUGS [Suspect]
     Dosage: UNKNOWN
  3. CANNABIS SATIVA [Suspect]
     Indication: PRODUCT USED FOR UNKNOWN INDICATION
     Dosage: UNKNOWN

REACTIONS (6)
  - Circulatory collapse [Fatal]
  - Multi-organ failure [Fatal]
  - Dyspnoea [Fatal]
  - Overdose [Fatal]
  - Drug abuse [Fatal]
  - Drug diversion [Fatal]
